FAERS Safety Report 20077277 (Version 2)
Quarter: 2021Q4

REPORT INFORMATION
  Report Type: Report from Study
  Country: FR (occurrence: FR)
  Receive Date: 20211116
  Receipt Date: 20211129
  Transmission Date: 20220303
  Serious: Yes (Death, Other)
  Sender: FDA-Public Use
  Company Number: FR-TEVA-2021-FR-1977350

PATIENT
  Sex: Female

DRUGS (1)
  1. CISPLATIN [Suspect]
     Active Substance: CISPLATIN
     Indication: Breast cancer metastatic
     Dosage: RECEIVED EVERY 3 WEEKS FOR A PLANNED COURSE OF SIX CYCLES
     Route: 050

REACTIONS (2)
  - Sepsis [Fatal]
  - Neutropenia [Unknown]
